FAERS Safety Report 22155399 (Version 1)
Quarter: 2023Q1

REPORT INFORMATION
  Report Type: Spontaneous
  Country: CN (occurrence: CN)
  Receive Date: 20230330
  Receipt Date: 20230330
  Transmission Date: 20230418
  Serious: Yes (Hospitalization)
  Sender: FDA-Public Use
  Company Number: CN-Merck Healthcare KGaA-9390812

PATIENT
  Age: 69 Year
  Sex: Male
  Weight: 63 kg

DRUGS (5)
  1. ERBITUX [Suspect]
     Active Substance: CETUXIMAB
     Indication: Colon cancer
     Dosage: 850 MG, UNK
     Route: 065
     Dates: start: 20230211, end: 20230225
  2. FLUOROURACIL [Suspect]
     Active Substance: FLUOROURACIL
     Indication: Colon cancer
     Dosage: 4.65 G, UNK
     Route: 065
     Dates: start: 20230211, end: 20230225
  3. OXALIPLATIN [Suspect]
     Active Substance: OXALIPLATIN
     Indication: Colon cancer
     Dosage: 125 MG, UNKNOWN
     Route: 041
     Dates: start: 20230211, end: 20230225
  4. SODIUM CHLORIDE [Concomitant]
     Active Substance: SODIUM CHLORIDE
     Indication: Medication dilution
     Dosage: 280 ML, UNKNOWN
     Dates: start: 20230211, end: 20230225
  5. GLUCOSE INJECTION MP [Concomitant]
     Indication: Medication dilution
     Dosage: 100 ML, UNKNOWN
     Route: 041
     Dates: start: 20230211, end: 20230225

REACTIONS (1)
  - Transaminases increased [Recovering/Resolving]

NARRATIVE: CASE EVENT DATE: 20230308
